FAERS Safety Report 16218201 (Version 2)
Quarter: 2019Q2

REPORT INFORMATION
  Report Type: Spontaneous
  Country: JP (occurrence: JP)
  Receive Date: 20190419
  Receipt Date: 20190426
  Transmission Date: 20190711
  Serious: Yes (Hospitalization)
  Sender: FDA-Public Use
  Company Number: JP-ASTRAZENECA-2019SE58436

PATIENT
  Age: 44 Year
  Sex: Male
  Weight: 82 kg

DRUGS (13)
  1. NEXIUM [Suspect]
     Active Substance: ESOMEPRAZOLE MAGNESIUM
     Indication: PEPTIC ULCER
     Route: 048
     Dates: start: 20190402, end: 20190403
  2. ATARAX [Concomitant]
     Active Substance: HYDROXYZINE HYDROCHLORIDE
     Dosage: DOSE UNKNOWN
     Route: 065
  3. CHICHINA [Concomitant]
     Dosage: DOSE UNKNOWN
     Route: 065
  4. TRANEXAMIC ACID. [Concomitant]
     Active Substance: TRANEXAMIC ACID
     Dosage: DOSE UNKNOWN
     Route: 065
  5. ACELIO [Concomitant]
     Active Substance: ACETAMINOPHEN
     Dosage: DOSE UNKNOWN
     Route: 065
  6. OMEPRAL [Suspect]
     Active Substance: OMEPRAZOLE
     Indication: PEPTIC ULCER
     Dosage: 20 MG TWO TIMES A DAY, NON AZ
     Route: 042
     Dates: start: 20190330, end: 20190401
  7. REBAMIPIDE [Concomitant]
     Active Substance: REBAMIPIDE
     Dosage: DOSE UNKNOWN
     Route: 048
  8. INTEBAN [Concomitant]
     Active Substance: INDOMETHACIN
     Route: 054
  9. SERENACE [Concomitant]
     Active Substance: HALOPERIDOL
     Dosage: DOSE UNKNOWN
     Route: 065
  10. SULBACILLIN [Concomitant]
     Active Substance: AMPICILLIN SODIUM\SULBACTAM SODIUM
     Dosage: DOSE UNKNOWN
     Route: 065
  11. HARTMANN [Concomitant]
     Active Substance: CALCIUM CHLORIDE\POTASSIUM CHLORIDE\SODIUM CHLORIDE\SODIUM LACTATE
     Dosage: DOSE UNKNOWN
     Route: 065
  12. SOLDACTONE [Concomitant]
     Active Substance: CANRENOATE POTASSIUM
     Dosage: DOSE UNKNOWN
     Route: 065
  13. LOXOPROFEN [Concomitant]
     Active Substance: LOXOPROFEN
     Dosage: DOSE UNKNOWN
     Route: 048

REACTIONS (1)
  - Blood creatine phosphokinase increased [Recovered/Resolved]

NARRATIVE: CASE EVENT DATE: 20190330
